FAERS Safety Report 7219611-3 (Version None)
Quarter: 2011Q1

REPORT INFORMATION
  Report Type: 
  Country: None (occurrence: None)
  Receive Date: 20110111
  Receipt Date: 20110104
  Transmission Date: 20110831
  Serious: Yes (Hospitalization, Other)
  Sender: FDA-Public Use
  Company Number: US-SANOFI-AVENTIS-2010SA032058

PATIENT
  Age: 81 Year
  Sex: Female

DRUGS (2)
  1. LANTUS [Suspect]
     Indication: INSULIN-REQUIRING TYPE 2 DIABETES MELLITUS
     Dosage: DOSE:16 UNIT(S)
     Route: 058
  2. OPTICLICK [Suspect]
     Indication: INSULIN-REQUIRING TYPE 2 DIABETES MELLITUS

REACTIONS (7)
  - INJECTION SITE PAIN [None]
  - MYOCARDIAL INFARCTION [None]
  - LYMPHADENOPATHY [None]
  - VISUAL ACUITY REDUCED [None]
  - ABDOMINAL DISTENSION [None]
  - INJECTION SITE DISCHARGE [None]
  - ASTHENIA [None]
